FAERS Safety Report 7005073-8 (Version None)
Quarter: 2010Q3

REPORT INFORMATION
  Report Type: 
  Country: None (occurrence: None)
  Receive Date: 20100921
  Receipt Date: 20100910
  Transmission Date: 20110219
  Serious: Yes (Life-Threatening, Hospitalization)
  Sender: FDA-Public Use
  Company Number: FR-JNJFOC-20100904719

PATIENT
  Sex: Female

DRUGS (4)
  1. IXPRIM [Suspect]
     Indication: ARTHRALGIA
     Route: 048
  2. IXPRIM [Suspect]
     Route: 048
  3. KEPPRA [Suspect]
     Indication: EPILEPSY
     Route: 048
  4. KEPPRA [Suspect]
     Route: 048

REACTIONS (3)
  - HEPATITIS FULMINANT [None]
  - HYPOGLYCAEMIA [None]
  - INTENTIONAL OVERDOSE [None]
